FAERS Safety Report 4311138-1 (Version None)
Quarter: 2004Q1

REPORT INFORMATION
  Report Type: 
  Country: None (occurrence: None)
  Receive Date: 20040302
  Receipt Date: 20040220
  Transmission Date: 20041129
  Serious: Yes (Death)
  Sender: FDA-Public Use
  Company Number: 03P-087-0233748-00

PATIENT
  Age: 64 Year
  Sex: Male

DRUGS (15)
  1. KALETRA [Suspect]
     Indication: HIV INFECTION
     Dosage: 1 CAPSULE, 6 IN 1 D, PER ORAL
     Route: 048
     Dates: start: 20020930, end: 20021008
  2. RITONAVIR [Suspect]
     Indication: HIV INFECTION
     Dosage: 200 MG, PER ORAL
     Route: 048
     Dates: start: 20021213, end: 20021225
  3. DIDANOSINE [Concomitant]
  4. STAVUDINE [Concomitant]
  5. AVACAVIR SULFATE [Concomitant]
  6. EFAVIRENZ [Concomitant]
  7. INDINAVIR [Concomitant]
  8. SAQUINAVIR [Concomitant]
  9. PHENYTOIN [Concomitant]
  10. FLUVOXAMINE MALEATE [Concomitant]
  11. TAMSULOSIN HYDROCHLORIDE [Concomitant]
  12. ISONIAZID [Concomitant]
  13. RIFAMPICIN [Concomitant]
  14. ETHAMBUTOL DIHYDROCHLORIDE [Concomitant]
  15. LEVOFLOXACIN [Concomitant]

REACTIONS (6)
  - CATHETER RELATED INFECTION [None]
  - CONDITION AGGRAVATED [None]
  - ENCEPHALOPATHY [None]
  - HIV INFECTION [None]
  - SEPTIC SHOCK [None]
  - STAPHYLOCOCCAL INFECTION [None]
